FAERS Safety Report 9624241 (Version 4)
Quarter: 2014Q1

REPORT INFORMATION
  Report Type: Spontaneous
  Country: FR (occurrence: FR)
  Receive Date: 20131015
  Receipt Date: 20140218
  Transmission Date: 20141002
  Serious: Yes (Hospitalization, Other)
  Sender: FDA-Public Use
  Company Number: FR-PFIZER INC-2013292989

PATIENT
  Age: 64 Year
  Sex: Male

DRUGS (13)
  1. EFFEXOR [Suspect]
     Indication: DEPRESSION
     Dosage: UNK
     Route: 048
     Dates: start: 201306, end: 201308
  2. ATENOLOL [Suspect]
     Indication: CORONARY ARTERY DISEASE
     Dosage: UNK
     Route: 048
  3. CRESTOR [Suspect]
     Indication: HYPERCHOLESTEROLAEMIA
     Dosage: UNK
     Route: 048
  4. INEXIUM [Suspect]
     Indication: PROPHYLAXIS
     Dosage: UNK
     Route: 048
  5. CORVASAL [Suspect]
     Indication: CORONARY ARTERY DISEASE
     Dosage: UNK
     Route: 048
     Dates: end: 201306
  6. CORVASAL [Suspect]
     Dosage: 3 DF, DAILY
     Route: 048
     Dates: start: 201306
  7. EZETROL [Concomitant]
     Dosage: UNK
  8. KARDEGIC [Concomitant]
     Dosage: UNK
  9. PLAVIX [Concomitant]
     Dosage: UNK
  10. IMOVANE [Concomitant]
     Dosage: UNK
  11. LAMALINE [Concomitant]
     Dosage: UNK
  12. AERIUS [Concomitant]
     Dosage: UNK
  13. GAVISCON [Concomitant]
     Dosage: UNK

REACTIONS (1)
  - Cutaneous lupus erythematosus [Unknown]
